FAERS Safety Report 21978635 (Version 3)
Quarter: 2023Q2

REPORT INFORMATION
  Report Type: Spontaneous
  Country: US (occurrence: US)
  Receive Date: 20230210
  Receipt Date: 20230504
  Transmission Date: 20230721
  Serious: Yes (Hospitalization, Other)
  Sender: FDA-Public Use
  Company Number: US-BIOVITRUM-2023US01894

PATIENT
  Age: 0 Year
  Sex: Male
  Weight: 8.52 kg

DRUGS (6)
  1. SYNAGIS [Suspect]
     Active Substance: PALIVIZUMAB
     Indication: Congenital diaphragmatic anomaly
     Dosage: 15 MG/KG MONTHLY
     Route: 030
     Dates: start: 202211
  2. AZITHROMYCIN [Concomitant]
     Active Substance: AZITHROMYCIN
     Indication: Product used for unknown indication
     Dosage: 100 MG/5ML SUSPENSION RECONSTITUTED 7.5 ML DAY1 THEN 3.5 ML PO QD X 4 DAYS ORALLY ONCE A DAY
     Route: 048
  3. MONTELUKAST SODIUM [Concomitant]
     Active Substance: MONTELUKAST SODIUM
     Indication: Product used for unknown indication
     Dosage: 4 MG PACKET 1 PACKET ORALLY ONCE A DAY
     Route: 048
  4. OFLOXACIN [Concomitant]
     Active Substance: OFLOXACIN
     Indication: Product used for unknown indication
     Dosage: 0.3 % SOLUTION 5 DROPS OTIC TWICE A DAY
     Route: 001
  5. BUDESONIDE [Concomitant]
     Active Substance: BUDESONIDE
     Indication: Product used for unknown indication
     Dosage: 0.5 MG/2ML SUSPENSION 2 ML INHALATION TWICE A DAY
     Route: 055
  6. ALBUTEROL SULFATE [Concomitant]
     Active Substance: ALBUTEROL SULFATE
     Indication: Product used for unknown indication
     Dosage: (2.5 MG/3ML) 0.083% NEBULIZATION SOLUTION INHALATION
     Route: 055

REACTIONS (9)
  - Off label use [Unknown]
  - COVID-19 [Unknown]
  - Product dose omission issue [Unknown]
  - Ear infection [Unknown]
  - Illness [Unknown]
  - Asthma [Unknown]
  - Upper respiratory tract infection [Unknown]
  - Respiratory failure [Unknown]
  - Sepsis [Unknown]

NARRATIVE: CASE EVENT DATE: 20221101
